FAERS Safety Report 6785282-3 (Version None)
Quarter: 2010Q2

REPORT INFORMATION
  Report Type: 
  Country: None (occurrence: None)
  Receive Date: 20100623
  Receipt Date: 20100614
  Transmission Date: 20101027
  Serious: Yes (Hospitalization)
  Sender: FDA-Public Use
  Company Number: JP-SP-2010-02494

PATIENT
  Sex: Male

DRUGS (3)
  1. IMMUCYST [Suspect]
     Indication: BLADDER CANCER
     Route: 043
     Dates: start: 20100318, end: 20100408
  2. ISOTONIC SODIUM CHLORIDE SOLUTION [Concomitant]
     Dates: start: 20100318, end: 20100408
  3. DONEPEZIL HYDROCHLORIDE [Concomitant]
     Dates: start: 20071101

REACTIONS (6)
  - ARTHRALGIA [None]
  - BOVINE TUBERCULOSIS [None]
  - CONJUNCTIVAL HYPERAEMIA [None]
  - PYREXIA [None]
  - TYPE IV HYPERSENSITIVITY REACTION [None]
  - URINARY TRACT INFECTION [None]
